APPROVED DRUG PRODUCT: FLUOCINOLONE ACETONIDE
Active Ingredient: FLUOCINOLONE ACETONIDE
Strength: 0.01%
Dosage Form/Route: OIL/DROPS;OTIC
Application: A202705 | Product #001
Applicant: SCIEGEN PHARMACEUTICALS INC
Approved: Sep 9, 2016 | RLD: No | RS: No | Type: DISCN